FAERS Safety Report 24364495 (Version 1)
Quarter: 2024Q3

REPORT INFORMATION
  Report Type: Spontaneous
  Country: US (occurrence: US)
  Receive Date: 20240926
  Receipt Date: 20240926
  Transmission Date: 20241016
  Serious: No
  Sender: ABBVIE
  Company Number: US-ABBVIE-5934230

PATIENT
  Age: 47 Year
  Sex: Female

DRUGS (11)
  1. BOTOX [Suspect]
     Active Substance: ONABOTULINUMTOXINA
     Indication: Skin wrinkling
     Dosage: TIME INTERVAL: AS NECESSARY: DOSE: 6 UNITS
     Route: 065
     Dates: start: 20240827, end: 20240827
  2. BOTOX [Suspect]
     Active Substance: ONABOTULINUMTOXINA
     Indication: Skin wrinkling
     Dosage: TIME INTERVAL: AS NECESSARY: DOSE: 6 UNITS
     Route: 065
     Dates: start: 20240827, end: 20240827
  3. BOTOX [Suspect]
     Active Substance: ONABOTULINUMTOXINA
     Indication: Skin wrinkling
     Dosage: TIME INTERVAL: AS NECESSARY: DOSE: 20 UNITS
     Route: 065
     Dates: start: 20240827, end: 20240827
  4. HYALURONIC ACID\LIDOCAINE [Concomitant]
     Active Substance: HYALURONIC ACID\LIDOCAINE
     Indication: Product used for unknown indication
     Dates: start: 20240827
  5. HYALURONIC ACID\LIDOCAINE [Concomitant]
     Active Substance: HYALURONIC ACID\LIDOCAINE
     Indication: Product used for unknown indication
     Dates: start: 20240827
  6. DAXXIFY [Concomitant]
     Active Substance: DAXIBOTULINUMTOXIN A-LANM
     Indication: Product used for unknown indication
     Dosage: DOSE: 4 BOTOX EQUIVALENT UNITS
     Route: 065
  7. DAXXIFY [Concomitant]
     Active Substance: DAXIBOTULINUMTOXIN A-LANM
     Indication: Product used for unknown indication
     Dosage: DOSE: 14 BOTOX EQUIVALENT UNITS
     Route: 065
  8. DAXXIFY [Concomitant]
     Active Substance: DAXIBOTULINUMTOXIN A-LANM
     Indication: Product used for unknown indication
     Dosage: DOSE: 12 BOTOX EQUIVALENT UNITS
     Route: 065
  9. HYLENEX RECOMBINANT [Concomitant]
     Active Substance: HYALURONIDASE (HUMAN RECOMBINANT)
     Indication: Product used for unknown indication
     Dates: start: 20240913
  10. KENALOG [Concomitant]
     Active Substance: TRIAMCINOLONE ACETONIDE
     Indication: Product used for unknown indication
     Dates: start: 20240913
  11. FLUOROURACIL [Concomitant]
     Active Substance: FLUOROURACIL
     Indication: Product used for unknown indication
     Dates: start: 20240913

REACTIONS (11)
  - Product use in unapproved indication [Unknown]
  - Periorbital swelling [Unknown]
  - Pain [Unknown]
  - Facial pain [Recovered/Resolved]
  - Facial discomfort [Recovered/Resolved]
  - Erythema [Recovered/Resolved]
  - Pain [Not Recovered/Not Resolved]
  - Facial discomfort [Not Recovered/Not Resolved]
  - Erythema [Not Recovered/Not Resolved]
  - Swelling face [Recovered/Resolved]
  - Swelling face [Not Recovered/Not Resolved]

NARRATIVE: CASE EVENT DATE: 20240101
